FAERS Safety Report 7134357-8 (Version None)
Quarter: 2010Q4

REPORT INFORMATION
  Report Type: 
  Country: None (occurrence: None)
  Receive Date: 20101117
  Receipt Date: 20101021
  Transmission Date: 20110411
  Serious: No
  Sender: FDA-Public Use
  Company Number: 2006JP000102

PATIENT
  Age: 9 Year
  Sex: Male

DRUGS (16)
  1. PROTOPIC [Suspect]
     Indication: DERMATITIS ATOPIC
     Dosage: 0.03 %, TOPICAL ; 0.03 % , TOPICAL
     Route: 061
  2. PALDES (CLOBETASONE BUTYRATE) [Concomitant]
  3. ANAMIDOL (DIFLORASONE DIACETATE) [Concomitant]
  4. ZINC OXIDE (ZINC OXIDE) [Concomitant]
  5. LIDOMEX (PREDNISOLONE VALEROACETATE) [Concomitant]
  6. HIRUDOID (HEPARINOID0 [Concomitant]
  7. NERISONE [Concomitant]
  8. TOKUDERM (BETAMETHASONE VALERATE) [Concomitant]
  9. DIFLAL (DIFLORASONE DIACETATE) [Concomitant]
  10. ALLEGRA [Concomitant]
  11. ZYRTEC (PSEUDOEPHEDRINE HYDROCHLORIDE) [Concomitant]
  12. METHADERM (DEXAMETHASONE DIPROPIONATE) [Concomitant]
  13. ZALUCS (DEXAMETHASONE VALERATE) [Concomitant]
  14. ZADITEN [Concomitant]
  15. WHITE PETROLEUM (PETROLATUM) [Concomitant]
  16. SATOSALBE (ZINC OXIDE) [Concomitant]

REACTIONS (3)
  - KAPOSI'S VARICELLIFORM ERUPTION [None]
  - SKIN PAPILLOMA [None]
  - TINEA PEDIS [None]
